FAERS Safety Report 11030527 (Version 2)
Quarter: 2015Q2

REPORT INFORMATION
  Report Type: Spontaneous
  Country: US (occurrence: US)
  Receive Date: 20150409
  Receipt Date: 20150426
  Transmission Date: 20150821
  Serious: Yes (Other)
  Sender: FDA-Public Use
  Company Number: PHEH2015US003992

PATIENT
  Age: 39 Year
  Sex: Female
  Weight: 125.6 kg

DRUGS (1)
  1. SIGNIFOR [Suspect]
     Active Substance: PASIREOTIDE
     Indication: PITUITARY-DEPENDENT CUSHING^S SYNDROME
     Dosage: 90 UG, BID
     Route: 058
     Dates: start: 20130315

REACTIONS (4)
  - Weight decreased [Unknown]
  - Blood pressure increased [Unknown]
  - Diabetes mellitus [Recovering/Resolving]
  - Hyperglycaemia [Unknown]

NARRATIVE: CASE EVENT DATE: 201305
